FAERS Safety Report 9801996 (Version 3)
Quarter: 2014Q1

REPORT INFORMATION
  Report Type: Spontaneous
  Country: CN (occurrence: CN)
  Receive Date: 20140107
  Receipt Date: 20140109
  Transmission Date: 20141002
  Serious: Yes (Other)
  Sender: FDA-Public Use
  Company Number: CN-PFIZER INC-2014001941

PATIENT
  Age: 36 Year
  Sex: Female

DRUGS (4)
  1. DEXAMETHASONE SODIUM PHOSPHATE [Suspect]
     Indication: ASTHMA
     Dosage: UNK
  2. DEXAMETHASONE SODIUM PHOSPHATE [Suspect]
     Indication: RHINITIS
  3. CEFOTAXIME [Suspect]
     Indication: ASTHMA
     Dosage: UNK
  4. CEFOTAXIME [Suspect]
     Indication: RHINITIS

REACTIONS (1)
  - Aspergillus infection [Recovered/Resolved]
